FAERS Safety Report 8434929-4 (Version None)
Quarter: 2012Q2

REPORT INFORMATION
  Report Type: 
  Country: None (occurrence: None)
  Receive Date: 20120614
  Receipt Date: 20120608
  Transmission Date: 20120825
  Serious: No
  Sender: FDA-Public Use
  Company Number: US-PFIZER INC-2012138728

PATIENT
  Sex: Female
  Weight: 84.807 kg

DRUGS (5)
  1. FLECTOR [Suspect]
     Indication: JOINT INJURY
  2. VITAMIN B-12 [Concomitant]
     Dosage: UNK
  3. FLECTOR [Suspect]
     Indication: OSTEOARTHRITIS
     Dosage: UNK, 2X/DAY
     Route: 062
     Dates: start: 20120501, end: 20120607
  4. CELEBREX [Suspect]
     Indication: OSTEOARTHRITIS
     Dosage: UNK, DAILY
     Dates: start: 20110101
  5. CELEBREX [Suspect]
     Indication: ARTHRITIS
     Dosage: UNK, DAILY
     Dates: start: 20120501

REACTIONS (3)
  - ERYTHEMA [None]
  - OEDEMA PERIPHERAL [None]
  - FATIGUE [None]
